FAERS Safety Report 6900888-6 (Version None)
Quarter: 2010Q3

REPORT INFORMATION
  Report Type: 
  Country: None (occurrence: None)
  Receive Date: 20100803
  Receipt Date: 20100727
  Transmission Date: 20110219
  Serious: Yes (Hospitalization)
  Sender: FDA-Public Use
  Company Number: A0867263A

PATIENT
  Age: 75 Year
  Sex: Male
  Weight: 132.3 kg

DRUGS (1)
  1. AVANDIA [Suspect]
     Dates: start: 20040101, end: 20070101

REACTIONS (7)
  - ANAEMIA [None]
  - ATRIAL FIBRILLATION [None]
  - BRADYARRHYTHMIA [None]
  - CARDIAC FAILURE CONGESTIVE [None]
  - MYOCARDIAL INFARCTION [None]
  - PNEUMONIA [None]
  - UPPER GASTROINTESTINAL HAEMORRHAGE [None]
